FAERS Safety Report 17064289 (Version 3)
Quarter: 2020Q3

REPORT INFORMATION
  Report Type: Report from Study
  Country: US (occurrence: US)
  Receive Date: 20191122
  Receipt Date: 20200930
  Transmission Date: 20201102
  Serious: Yes (Hospitalization, Other)
  Sender: FDA-Public Use
  Company Number: US-SA-2019SA271494

PATIENT

DRUGS (4)
  1. ALEMTUZUMAB [Suspect]
     Active Substance: ALEMTUZUMAB
     Dosage: 4.2 MG, QD
     Route: 041
     Dates: start: 20190926, end: 20190926
  2. ALEMTUZUMAB [Suspect]
     Active Substance: ALEMTUZUMAB
     Indication: MULTIPLE SCLEROSIS
     Dosage: 12 MG/1.2 ML, QD
     Route: 041
     Dates: start: 20190923, end: 20190925
  3. METHYLPREDNISOLONE SODIUM SUCCINATE. [Suspect]
     Active Substance: METHYLPREDNISOLONE SODIUM SUCCINATE
     Indication: PREMEDICATION
     Dosage: UNK, UNK
     Route: 042
     Dates: start: 201909
  4. SOLU?MEDROL [Concomitant]
     Active Substance: METHYLPREDNISOLONE SODIUM SUCCINATE
     Indication: PREMEDICATION
     Dosage: UNK
     Route: 065

REACTIONS (25)
  - Ill-defined disorder [Unknown]
  - Hypoaesthesia [Unknown]
  - Rash macular [Recovered/Resolved]
  - Substance-induced psychotic disorder [Not Recovered/Not Resolved]
  - Seizure [Unknown]
  - Gait disturbance [Unknown]
  - Agitation [Not Recovered/Not Resolved]
  - Hypersomnia [Unknown]
  - Asthenia [Not Recovered/Not Resolved]
  - Rash [Recovered/Resolved]
  - Disorientation [Unknown]
  - Hypertension [Recovered/Resolved]
  - Rash erythematous [Not Recovered/Not Resolved]
  - Headache [Not Recovered/Not Resolved]
  - Amenorrhoea [Unknown]
  - Increased tendency to bruise [Unknown]
  - Multiple sclerosis [Not Recovered/Not Resolved]
  - Posterior reversible encephalopathy syndrome [Not Recovered/Not Resolved]
  - Pruritus [Not Recovered/Not Resolved]
  - Confusional state [Not Recovered/Not Resolved]
  - Blood pressure increased [Not Recovered/Not Resolved]
  - Fall [Not Recovered/Not Resolved]
  - Mental status changes [Recovered/Resolved]
  - Mood swings [Not Recovered/Not Resolved]
  - Off label use [Unknown]

NARRATIVE: CASE EVENT DATE: 2019
